FAERS Safety Report 20196503 (Version 2)
Quarter: 2022Q1

REPORT INFORMATION
  Report Type: Spontaneous
  Country: US (occurrence: None)
  Receive Date: 20211216
  Receipt Date: 20220201
  Transmission Date: 20220423
  Serious: No
  Sender: FDA-Public Use
  Company Number: US-Merck Healthcare KGaA-9285575

PATIENT
  Age: 61 Year
  Sex: Female

DRUGS (4)
  1. REBIF [Suspect]
     Active Substance: INTERFERON BETA-1A
     Indication: Multiple sclerosis
     Dosage: WEEK 1 AND 2
     Route: 058
     Dates: start: 20211124
  2. REBIF [Suspect]
     Active Substance: INTERFERON BETA-1A
     Indication: Polyneuropathy
     Dosage: WEEK 3 AND 4
     Route: 058
     Dates: start: 2021
  3. REBIF [Suspect]
     Active Substance: INTERFERON BETA-1A
     Indication: Inflammation
     Dosage: THEREAFTER
     Route: 058
     Dates: start: 2021
  4. DALFAMPRIDINE [Suspect]
     Active Substance: DALFAMPRIDINE
     Indication: Product used for unknown indication

REACTIONS (3)
  - Multiple sclerosis relapse [Unknown]
  - Multiple sclerosis [Unknown]
  - Off label use [Unknown]

NARRATIVE: CASE EVENT DATE: 20210101
